FAERS Safety Report 15202274 (Version 3)
Quarter: 2018Q3

REPORT INFORMATION
  Report Type: Spontaneous
  Country: VN (occurrence: VN)
  Receive Date: 20180726
  Receipt Date: 20180906
  Transmission Date: 20181010
  Serious: Yes (Death, Hospitalization, Other)
  Sender: FDA-Public Use
  Company Number: VN-SAKK-2018SA203744AA

PATIENT
  Age: 11 Month
  Sex: Female
  Weight: 7.8 kg

DRUGS (1)
  1. ALGLUCOSIDASE ALFA [Suspect]
     Active Substance: ALGLUCOSIDASE ALFA
     Indication: GLYCOGEN STORAGE DISEASE TYPE II
     Dosage: 20 MG/KG, QOW
     Route: 041
     Dates: start: 20180201, end: 20180705

REACTIONS (7)
  - Pneumonia [Fatal]
  - Hypotonia [Unknown]
  - Dyspnoea [Fatal]
  - Cardiomyopathy [Unknown]
  - Respiratory failure [Fatal]
  - Cough [Fatal]
  - Pyrexia [Fatal]

NARRATIVE: CASE EVENT DATE: 20180730
